FAERS Safety Report 7006535-X (Version None)
Quarter: 2010Q3

REPORT INFORMATION
  Report Type: 
  Country: None (occurrence: None)
  Receive Date: 20100921
  Receipt Date: 20100921
  Transmission Date: 20110219
  Serious: Yes (Other)
  Sender: FDA-Public Use
  Company Number: None

PATIENT
  Age: 72 Year
  Sex: Male
  Weight: 72.5755 kg

DRUGS (1)
  1. PANTOPRAZOLE [Suspect]
     Dosage: 1 TAB ONCE DAILY PO
     Route: 048

REACTIONS (2)
  - PRURITUS [None]
  - URTICARIA [None]
